FAERS Safety Report 18128472 (Version 2)
Quarter: 2020Q3

REPORT INFORMATION
  Report Type: Report from Study
  Country: NL (occurrence: NL)
  Receive Date: 20200810
  Receipt Date: 20200812
  Transmission Date: 20201103
  Serious: Yes (Hospitalization)
  Sender: FDA-Public Use
  Company Number: PHHO2017NL001600

PATIENT
  Age: 60 Year
  Sex: Female
  Weight: 62 kg

DRUGS (16)
  1. FERROUS FUMARATE [Concomitant]
     Active Substance: FERROUS FUMARATE
     Indication: ANAEMIA
     Dosage: 200 MG, BID
     Route: 048
     Dates: start: 20170306
  2. PDR001 [Suspect]
     Active Substance: SPARTALIZUMAB
     Dosage: 400 MG, Q4W
     Route: 042
     Dates: start: 20170327
  3. RAD 666 / RAD 001A [Suspect]
     Active Substance: EVEROLIMUS
     Dosage: 5 MG, QW
     Route: 048
     Dates: start: 20170220
  4. PDR001 [Suspect]
     Active Substance: SPARTALIZUMAB
     Dosage: 400 MG, Q4W
     Route: 042
     Dates: start: 20170220
  5. PREDNISON [Concomitant]
     Active Substance: PREDNISONE
     Indication: AUTOIMMUNE HEPATITIS
  6. DALTEPARIN [Concomitant]
     Active Substance: DALTEPARIN
     Indication: PULMONARY EMBOLISM
     Dosage: 1500 IU, QD
     Route: 058
     Dates: start: 20170213
  7. PARACETAMOL [Concomitant]
     Active Substance: ACETAMINOPHEN
     Indication: ABDOMINAL DISCOMFORT
     Dosage: 1000 MG, BID
     Route: 048
     Dates: start: 20161101
  8. PREDNISON [Concomitant]
     Active Substance: PREDNISONE
     Indication: VOMITING
     Dosage: 10 MG, QD
     Route: 048
     Dates: start: 20170127
  9. PDR001 [Suspect]
     Active Substance: SPARTALIZUMAB
     Indication: DRUG LEVEL
     Dosage: 400 MG, Q4W
     Route: 042
     Dates: start: 20161031
  10. METOCLOPRAMIDE. [Concomitant]
     Active Substance: METOCLOPRAMIDE
     Indication: VOMITING
  11. RAD 666 / RAD 001A [Suspect]
     Active Substance: EVEROLIMUS
     Dosage: 5 MG, QW
     Route: 048
     Dates: start: 20170327
  12. PREDNISON [Concomitant]
     Active Substance: PREDNISONE
     Indication: NAUSEA
  13. PANTOPRAZOL [Concomitant]
     Active Substance: PANTOPRAZOLE SODIUM
     Dosage: 20 MG, QD
     Route: 048
     Dates: start: 20170206
  14. RAD 666 / RAD 001A [Suspect]
     Active Substance: EVEROLIMUS
     Indication: DRUG LEVEL
     Dosage: 5 MG, QW
     Route: 048
     Dates: start: 20161031, end: 20170116
  15. METOCLOPRAMIDE. [Concomitant]
     Active Substance: METOCLOPRAMIDE
     Indication: ASCITES
     Dosage: 10 MG, QID
     Route: 048
     Dates: start: 20161121
  16. PREDNISON [Concomitant]
     Active Substance: PREDNISONE
     Indication: DYSPNOEA

REACTIONS (1)
  - Pleural effusion [Recovering/Resolving]

NARRATIVE: CASE EVENT DATE: 20170120
